FAERS Safety Report 21620935 (Version 1)
Quarter: 2022Q4

REPORT INFORMATION
  Report Type: Spontaneous
  Country: US (occurrence: None)
  Receive Date: 20221118
  Receipt Date: 20221118
  Transmission Date: 20230113
  Serious: Yes (Hospitalization)
  Sender: FDA-Public Use
  Company Number: None

PATIENT
  Age: 76 Year
  Sex: Male
  Weight: 87.82 kg

DRUGS (13)
  1. CAPECITABINE [Suspect]
     Active Substance: CAPECITABINE
     Indication: Colon cancer
     Dosage: FREQUENCY : TWICE A DAY;?
     Route: 048
  2. ATORVASTATIN [Concomitant]
     Active Substance: ATORVASTATIN
  3. BYSTOLIC [Concomitant]
     Active Substance: NEBIVOLOL HYDROCHLORIDE
  4. CEFTRIAXONE [Concomitant]
     Active Substance: CEFTRIAXONE
  5. DIAZEPAM [Concomitant]
     Active Substance: DIAZEPAM
  6. ELIQUIS [Concomitant]
     Active Substance: APIXABAN
  7. ENTRESTO [Concomitant]
     Active Substance: SACUBITRIL\VALSARTAN
  8. LATANOPROST [Concomitant]
     Active Substance: LATANOPROST
  9. OXALIPLATIN [Concomitant]
     Active Substance: OXALIPLATIN
  10. POTASSIUM [Concomitant]
     Active Substance: POTASSIUM
  11. PROCHLORPERAZINE [Concomitant]
     Active Substance: PROCHLORPERAZINE
  12. SPIRONOLACTONE [Concomitant]
     Active Substance: SPIRONOLACTONE
  13. TEMAZEPAM [Concomitant]
     Active Substance: TEMAZEPAM

REACTIONS (3)
  - Asthenia [None]
  - Sepsis [None]
  - Dysentery [None]
